FAERS Safety Report 7827545-6 (Version None)
Quarter: 2011Q4

REPORT INFORMATION
  Report Type: 
  Country: None (occurrence: None)
  Receive Date: 20111020
  Receipt Date: 20111019
  Transmission Date: 20120403
  Serious: Yes (Death, Other)
  Sender: FDA-Public Use
  Company Number: PHHY2011NL77024

PATIENT
  Sex: Male

DRUGS (10)
  1. NAPROXEN [Concomitant]
     Dosage: 250 MG, 2-3 TIMES DAILY
  2. ISRADIPINE [Concomitant]
     Dosage: 2.5 MG, BID
  3. INHIBIN [Concomitant]
     Dosage: 100 MG, UNK
  4. METOPROLOL TARTRATE [Concomitant]
     Dosage: UNK
  5. OMEPRAZOLE [Concomitant]
     Dosage: UNK
  6. ZOMETA [Suspect]
     Dosage: 4 MG/ 5 ML ONCE EVERY 3 WEEKS
     Dates: start: 20110803
  7. CALCIUM CARBONATE [Concomitant]
     Dosage: 500 MG, UNK
  8. CYPROTERONE [Concomitant]
     Dosage: UNK
  9. ZOMETA [Suspect]
     Dosage: 4 MG/ 5 ML ONCE EVERY 3 WEEKS
     Dates: start: 20110829, end: 20110905
  10. ZOMETA [Suspect]
     Indication: PROSTATE CANCER METASTATIC
     Dosage: 4 MG/ 5 ML ONCE EVERY 3 WEEKS
     Route: 042
     Dates: start: 20110221

REACTIONS (5)
  - PELVIC PAIN [None]
  - GENERAL PHYSICAL HEALTH DETERIORATION [None]
  - DECREASED APPETITE [None]
  - ANAEMIA [None]
  - DEATH [None]
